FAERS Safety Report 13905697 (Version 1)
Quarter: 2017Q3

REPORT INFORMATION
  Report Type: Spontaneous
  Country: CH (occurrence: CH)
  Receive Date: 20170825
  Receipt Date: 20170825
  Transmission Date: 20171127
  Serious: Yes (Hospitalization)
  Sender: FDA-Public Use
  Company Number: CH-009507513-1708CHE009470

PATIENT
  Age: 84 Year
  Sex: Male

DRUGS (19)
  1. CONCOR [Suspect]
     Active Substance: BISOPROLOL FUMARATE
     Dosage: 2.5 MG, QD
     Route: 048
     Dates: end: 20170727
  2. DIAMICRON [Suspect]
     Active Substance: GLICLAZIDE
     Dosage: 15 MG, QD
     Route: 048
     Dates: end: 20170723
  3. INSULIN [Concomitant]
     Active Substance: INSULIN NOS
     Dosage: UNK
  4. CALCIMAGON D3 [Concomitant]
     Active Substance: CALCIUM\CHOLECALCIFEROL
     Dates: start: 20170722, end: 20170725
  5. ASPIRIN CARDIO [Suspect]
     Active Substance: ASPIRIN
     Dosage: 100 MG, QD
     Route: 048
     Dates: end: 20170727
  6. CLEXANE (ENOXAPARIN SODIUM) [Suspect]
     Active Substance: ENOXAPARIN SODIUM
     Dosage: 40 MG, QD
     Route: 058
     Dates: start: 20170722, end: 20170726
  7. SYMBICORT [Concomitant]
     Active Substance: BUDESONIDE\FORMOTEROL FUMARATE DIHYDRATE
     Dosage: 1 DF, UNK
     Dates: start: 20170722
  8. INEGY [Suspect]
     Active Substance: EZETIMIBE\SIMVASTATIN
     Dosage: UNK, ONCE A DAY AT NOON
     Route: 048
     Dates: end: 20170719
  9. NITRODERM [Concomitant]
     Active Substance: NITROGLYCERIN
     Dosage: 1 DF, UNK
     Route: 062
  10. FOLIC ACID. [Concomitant]
     Active Substance: FOLIC ACID
     Dosage: 5 MG, QD
     Route: 048
     Dates: start: 20170723, end: 20170727
  11. SERETIDE [Concomitant]
     Active Substance: FLUTICASONE PROPIONATE\SALMETEROL XINAFOATE
     Dosage: 1 DF, BID
     Dates: start: 20170727
  12. CIPROFLOXACIN. [Suspect]
     Active Substance: CIPROFLOXACIN
     Dosage: 500 MG, BID
     Route: 048
     Dates: start: 20170719, end: 20170721
  13. CEFTRIAXONE. [Suspect]
     Active Substance: CEFTRIAXONE
     Dosage: 2 G, QD
     Route: 041
     Dates: start: 20170722, end: 20170724
  14. PURSANA [Concomitant]
     Active Substance: FIG FRUIT OIL\SORBITOL
     Dosage: 30 ML, QD
     Route: 048
     Dates: start: 20170724
  15. JANUMET [Suspect]
     Active Substance: METFORMIN HYDROCHLORIDE\SITAGLIPTIN PHOSPHATE
     Dosage: 1 TABLET, QD
     Route: 048
     Dates: end: 20170725
  16. AMLODIPINE [Suspect]
     Active Substance: AMLODIPINE BESYLATE
     Dosage: 10 MG, UNK
     Route: 048
     Dates: start: 20170725, end: 20170725
  17. SEROQUEL [Suspect]
     Active Substance: QUETIAPINE FUMARATE
     Dosage: 12.5 MG, BID
     Route: 048
     Dates: end: 20170727
  18. IPRAMOL (ALBUTEROL SULFATE (+) IPRATROPIUM BROMIDE) [Concomitant]
     Dosage: UNK
  19. LAXOBERON [Concomitant]
     Active Substance: SODIUM PICOSULFATE
     Dosage: UNK

REACTIONS (1)
  - Cholestasis [Unknown]

NARRATIVE: CASE EVENT DATE: 20170727
